FAERS Safety Report 7079523-5 (Version None)
Quarter: 2010Q4

REPORT INFORMATION
  Report Type: 
  Country: None (occurrence: None)
  Receive Date: 20101022
  Receipt Date: 20101011
  Transmission Date: 20110411
  Serious: Yes (Hospitalization)
  Sender: FDA-Public Use
  Company Number: GER/GER/09/0008810

PATIENT
  Age: 79 Year
  Sex: Male
  Weight: 58 kg

DRUGS (11)
  1. TORSEMIDE [Suspect]
     Indication: HYPERTENSION
     Dosage: 10 MG, 1 IN 1 D, ORAL
     Route: 048
     Dates: end: 20080620
  2. XIPAMIDE (XIPAMIDE) [Suspect]
     Indication: HYPERTENSION
     Dosage: 10 MG, 1 IN 1 D, ORAL
     Route: 048
     Dates: end: 20080620
  3. RAMIPRIL [Suspect]
     Indication: HYPERTENSION
     Dosage: 1.25 MG, 1 IN 1 D, ORAL
     Route: 048
     Dates: end: 20080620
  4. ALDACTONE [Suspect]
     Indication: CARDIAC DISORDER
     Dosage: 25 MG, 1 N 1 D, ORAL
     Route: 048
     Dates: end: 20080620
  5. FALITHROM ^HEXAL^ (PHENPROCOUMON) [Concomitant]
  6. METOCLOPRAMIDE [Concomitant]
  7. PANTOPRAZOLE SODIUM [Concomitant]
  8. METAMIZOL NATRIUM (METAMIZOLE SODIUM) [Concomitant]
  9. ALLOPURINOL [Concomitant]
  10. SIMVASTATIN [Concomitant]
  11. RISPERIDONE [Concomitant]

REACTIONS (4)
  - ELECTROLYTE DEPLETION [None]
  - HYPOKALAEMIA [None]
  - HYPONATRAEMIA [None]
  - SYNCOPE [None]
